FAERS Safety Report 12925400 (Version 1)
Quarter: 2016Q4

REPORT INFORMATION
  Report Type: Spontaneous
  Country: US (occurrence: US)
  Receive Date: 20161108
  Receipt Date: 20161108
  Transmission Date: 20170207
  Serious: No
  Sender: FDA-Public Use
  Company Number: US-SA-2016SA153811

PATIENT
  Age: 62 Year
  Sex: Male

DRUGS (2)
  1. ALIROCUMAB PREFILLED PEN [Concomitant]
     Active Substance: ALIROCUMAB
     Dates: start: 20160817
  2. PRALUENT [Suspect]
     Active Substance: ALIROCUMAB
     Route: 065
     Dates: start: 20160817

REACTIONS (6)
  - Feeling abnormal [Not Recovered/Not Resolved]
  - Rhinorrhoea [Recovering/Resolving]
  - Myalgia [Recovering/Resolving]
  - Cold sweat [Recovering/Resolving]
  - Abdominal pain upper [Recovering/Resolving]
  - Pain [Recovering/Resolving]

NARRATIVE: CASE EVENT DATE: 20160818
